FAERS Safety Report 12056658 (Version 3)
Quarter: 2016Q4

REPORT INFORMATION
  Report Type: Report from Study
  Country: US (occurrence: US)
  Receive Date: 20160209
  Receipt Date: 20161101
  Transmission Date: 20170206
  Serious: Yes (Death, Hospitalization)
  Sender: FDA-Public Use
  Company Number: US-ACTELION-A-NJ2016-130867

PATIENT
  Age: 41 Year
  Sex: Female

DRUGS (2)
  1. SILDENAFIL. [Concomitant]
     Active Substance: SILDENAFIL
  2. OPSUMIT [Suspect]
     Active Substance: MACITENTAN
     Indication: PULMONARY ARTERIAL HYPERTENSION
     Dosage: 10 MG, QD
     Route: 048
     Dates: start: 20151117, end: 20161012

REACTIONS (4)
  - Pneumonia [Unknown]
  - Fluid retention [Recovered/Resolved]
  - Oedema [Recovered/Resolved]
  - Death [Fatal]

NARRATIVE: CASE EVENT DATE: 20161012
